FAERS Safety Report 5104943-5 (Version None)
Quarter: 2006Q3

REPORT INFORMATION
  Report Type: 
  Country: None (occurrence: None)
  Receive Date: 20060914
  Receipt Date: 20060302
  Transmission Date: 20061208
  Serious: Yes (Death)
  Sender: FDA-Public Use
  Company Number: US-SANOFI-SYNTHELABO-A03200601149

PATIENT
  Age: 85 Year
  Sex: Female

DRUGS (9)
  1. SIMVASTATIN [Concomitant]
     Dosage: UNK
     Route: 048
  2. IBUPROFEN [Concomitant]
     Dosage: UNK
     Route: 048
  3. SYNTHROID [Concomitant]
     Dosage: UNK
     Route: 048
  4. DILTIAZEM HCL [Concomitant]
     Dosage: UNK
     Route: 048
  5. DIOVAN [Concomitant]
     Dosage: UNK
     Route: 048
  6. LEXAPRO [Concomitant]
     Route: 048
  7. AMBIEN CR [Suspect]
     Indication: INSOMNIA
     Route: 048
     Dates: start: 20060217
  8. AMBIEN CR [Interacting]
     Indication: DEPRESSION
     Route: 048
     Dates: start: 20060217
  9. REMERON [Interacting]
     Indication: DEPRESSION
     Dosage: UNK
     Route: 048

REACTIONS (4)
  - AGGRESSION [None]
  - CHEST INJURY [None]
  - COMPLETED SUICIDE [None]
  - DRUG INTERACTION POTENTIATION [None]
